FAERS Safety Report 18987664 (Version 35)
Quarter: 2022Q3

REPORT INFORMATION
  Report Type: Spontaneous
  Country: GB (occurrence: GB)
  Receive Date: 20210309
  Receipt Date: 20220707
  Transmission Date: 20221027
  Serious: Yes (Death, Life-Threatening, Hospitalization, Disabling, Other)
  Sender: FDA-Public Use
  Company Number: GB-MYLANLABS-2018M1073364

PATIENT
  Age: 47 Year
  Sex: Female

DRUGS (57)
  1. LOSARTAN POTASSIUM [Suspect]
     Active Substance: LOSARTAN POTASSIUM
     Indication: Hypertension
     Dosage: 100 MG, QD, FILM COATED TABLET
     Route: 048
     Dates: end: 20180928
  2. LOSARTAN POTASSIUM [Suspect]
     Active Substance: LOSARTAN POTASSIUM
     Indication: Schizophrenia
     Dosage: 200 MILLIGRAM, OD, (EVERY 1 DAY)
     Route: 048
     Dates: start: 20170317, end: 20180928
  3. LOSARTAN POTASSIUM [Suspect]
     Active Substance: LOSARTAN POTASSIUM
     Dosage: UNK
  4. EZETIMIBE [Suspect]
     Active Substance: EZETIMIBE
     Indication: Blood cholesterol increased
     Dosage: 10 MG, QD/AM
     Route: 048
     Dates: end: 20180928
  5. EZETIMIBE [Suspect]
     Active Substance: EZETIMIBE
     Indication: Hypercholesterolaemia
     Dosage: 10 MILLIGRAM, DAILY, (10 MG, QD)
     Route: 048
     Dates: end: 20180928
  6. EZETIMIBE [Suspect]
     Active Substance: EZETIMIBE
     Dosage: 10 MILLIGRAM, DAILY, (10 MG, QD)
     Route: 048
     Dates: end: 20180928
  7. EZETIMIBE [Suspect]
     Active Substance: EZETIMIBE
     Dosage: 10 MG, QD
     Route: 048
  8. EZETIMIBE [Suspect]
     Active Substance: EZETIMIBE
     Dosage: UNK
  9. CLOZARIL [Suspect]
     Active Substance: CLOZAPINE
     Indication: Schizophrenia
     Dosage: 200 MILLIGRAM, QD, (200 MG, PM, 1 DAY)
     Route: 048
     Dates: start: 20170317, end: 20180928
  10. CLOZARIL [Suspect]
     Active Substance: CLOZAPINE
     Indication: Blood cholesterol increased
     Dosage: 58000 MILLIGRAM
     Route: 065
  11. CLOZARIL [Suspect]
     Active Substance: CLOZAPINE
     Dosage: 10 MILLIGRAM, QD
     Route: 048
     Dates: end: 20180928
  12. CLOZARIL [Suspect]
     Active Substance: CLOZAPINE
     Dosage: 10 MILLIGRAM, QD
     Route: 048
     Dates: end: 20180928
  13. CLOZARIL [Suspect]
     Active Substance: CLOZAPINE
     Dosage: 200 MG, QD
     Route: 048
  14. CLOZARIL [Suspect]
     Active Substance: CLOZAPINE
     Dosage: 200 MG, QD (PM)
     Route: 048
     Dates: start: 20170317, end: 20180928
  15. SERTRALINE HYDROCHLORIDE [Suspect]
     Active Substance: SERTRALINE HYDROCHLORIDE
     Indication: Depression
     Dosage: 50 MILLIGRAM, DAILY: 50 MG, QD, AM; 50 MG, QD
     Route: 048
     Dates: start: 201709, end: 20180928
  16. PRAVASTATIN [Suspect]
     Active Substance: PRAVASTATIN
     Indication: Blood cholesterol increased
     Dosage: 40 MILLIGRAM
     Route: 048
  17. PRAVASTATIN [Suspect]
     Active Substance: PRAVASTATIN
     Indication: Depression
     Dosage: 40 MILLIGRAM, QD (40 MG, PM, QHS, UNIT DOSE: 40 MG)
     Route: 048
  18. PRAVASTATIN [Suspect]
     Active Substance: PRAVASTATIN
     Dosage: 40 MILLIGRAM (40 MG, PM, QHS)
     Route: 048
     Dates: end: 20180928
  19. PRAVASTATIN [Suspect]
     Active Substance: PRAVASTATIN
     Dosage: 40 MG, PM, QHS
     Route: 048
  20. PRAVASTATIN [Suspect]
     Active Substance: PRAVASTATIN
     Dosage: 40 MG, OD,(EVERY 1 DAY)
     Route: 048
  21. PRAVASTATIN [Suspect]
     Active Substance: PRAVASTATIN
     Dosage: 50 MILLIGRAM, QD (SODIUM SALT OF PRAVASTATIN)
     Route: 048
     Dates: start: 201709
  22. PRAVASTATIN [Suspect]
     Active Substance: PRAVASTATIN
     Dosage: 40 MILLIGRAM, QD
     Route: 048
  23. PRAVASTATIN [Suspect]
     Active Substance: PRAVASTATIN
     Dosage: 40 MILLIGRAM
     Route: 048
  24. PRAVASTATIN [Suspect]
     Active Substance: PRAVASTATIN
     Dosage: 40 MILLIGRAM, QD
     Route: 048
  25. LANSOPRAZOLE [Suspect]
     Active Substance: LANSOPRAZOLE
     Indication: Gastrooesophageal reflux disease
     Dosage: 30 MILLIGRAM DAILY; 30 MG, AM, QD
     Route: 065
     Dates: end: 20180928
  26. LANSOPRAZOLE [Suspect]
     Active Substance: LANSOPRAZOLE
     Indication: Blood cholesterol increased
     Dosage: 30 MILLIGRAM, QD (30 MG, QD ); 30 MG, OD, (EVERY 1 DAY)
     Route: 065
     Dates: end: 20180928
  27. LANSOPRAZOLE [Suspect]
     Active Substance: LANSOPRAZOLE
     Indication: Blood cholesterol increased
     Dosage: 40 MILLIGRAM, QD
     Route: 048
     Dates: end: 20180928
  28. LANSOPRAZOLE [Suspect]
     Active Substance: LANSOPRAZOLE
     Dosage: 40 MILLIGRAM, QD
     Route: 065
  29. LANSOPRAZOLE [Suspect]
     Active Substance: LANSOPRAZOLE
     Dosage: 40 MILLIGRAM, QD
     Route: 048
  30. FELODIPINE [Suspect]
     Active Substance: FELODIPINE
     Indication: Hypertension
     Dosage: 10 MILLIGRAM, ONCE A DAY/AM, (10 MG QD)
     Route: 048
     Dates: end: 20180928
  31. FELODIPINE [Suspect]
     Active Substance: FELODIPINE
     Dosage: 10 MILLIGRAM, QD
     Route: 048
     Dates: end: 20180928
  32. AMLODIPINE [Suspect]
     Active Substance: AMLODIPINE BESYLATE
     Indication: Hypertension
     Dosage: 100 MILLIGRAM, ONCE A DAY (100 MG, QD)
     Route: 048
     Dates: start: 20180928, end: 20180928
  33. CLOZAPINE [Suspect]
     Active Substance: CLOZAPINE
     Indication: Product used for unknown indication
     Dosage: 200 MG, QD
     Route: 048
     Dates: start: 20170317, end: 20180928
  34. CLOZAPINE [Suspect]
     Active Substance: CLOZAPINE
     Indication: Schizophrenia
     Dosage: 200 MILLIGRAM, QD (PM)
     Route: 048
     Dates: start: 20170317, end: 20180928
  35. CLOZAPINE [Suspect]
     Active Substance: CLOZAPINE
     Dosage: 100 MG, QD
     Route: 048
     Dates: start: 20180928, end: 20180928
  36. HUMALOG MIX50/50 [Suspect]
     Active Substance: INSULIN LISPRO
     Indication: Diabetes mellitus
     Dosage: 120 IU, TID,60 IU ALSO RECEIVED
     Route: 048
     Dates: end: 20180928
  37. HUMALOG MIX50/50 [Suspect]
     Active Substance: INSULIN LISPRO
     Indication: Overdose
     Dosage: 60 IU, TID
     Route: 048
     Dates: end: 20180928
  38. HUMALOG MIX50/50 [Suspect]
     Active Substance: INSULIN LISPRO
     Indication: Medication error
     Dosage: 120 IU, TID,60 IU ALSO RECEIVED
     Dates: end: 20180928
  39. HUMALOG MIX50/50 [Suspect]
     Active Substance: INSULIN LISPRO
     Dosage: 180 INTERNATIONAL UNIT, QD (60 IU, TID)
     Route: 048
     Dates: end: 20180928
  40. HUMALOG MIX50/50 [Suspect]
     Active Substance: INSULIN LISPRO
     Dosage: 360 IU, QD (120 IU, TID)
     Route: 048
     Dates: end: 20180928
  41. HUMALOG MIX50/50 [Suspect]
     Active Substance: INSULIN LISPRO
     Dosage: 120 IU, TID (360 INTERNATIONAL UNIT, QD)
     Route: 048
     Dates: end: 20180928
  42. HUMALOG MIX50/50 [Suspect]
     Active Substance: INSULIN LISPRO
     Dosage: 360 INTERNATIONAL UNIT, QD (360 IU, QD)
     Route: 048
     Dates: end: 20180928
  43. HUMALOG MIX50/50 [Suspect]
     Active Substance: INSULIN LISPRO
     Dosage: 60 IU, TID (180 INTERNATIONAL UNIT, QD)
     Route: 048
     Dates: end: 20180928
  44. HUMALOG MIX50/50 [Suspect]
     Active Substance: INSULIN LISPRO
     Dosage: UNK
     Route: 065
  45. HUMALOG MIX50/50 [Suspect]
     Active Substance: INSULIN LISPRO
     Dosage: 180 INTERNATIONAL UNIT, TID (60 IU, TID)
     Route: 048
     Dates: end: 20180928
  46. HUMALOG MIX50/50 [Suspect]
     Active Substance: INSULIN LISPRO
     Dosage: 180 IU INTERNATIONAL UNIT(S); (60 IU, TID)
     Route: 048
     Dates: end: 20180928
  47. HUMALOG MIX50/50 [Suspect]
     Active Substance: INSULIN LISPRO
     Dosage: 360 INTERNATIONAL UNIT, QD, 120 IU, TID, (60 IU ALSO RECEIVED)
     Route: 048
  48. HUMALOG MIX50/50 [Suspect]
     Active Substance: INSULIN LISPRO
     Dosage: 360 INTERNATIONAL UNIT, QD, 360 IU, QD, (360 IU, QD)
     Route: 048
  49. HUMALOG MIX50/50 [Suspect]
     Active Substance: INSULIN LISPRO
     Dosage: 360 INTERNATIONAL UNIT, QD, 120 IU, TID,60 IU ALSO RECEIVED
     Route: 048
     Dates: end: 20210928
  50. HUMALOG MIX50/50 [Suspect]
     Active Substance: INSULIN LISPRO
     Dosage: 180 INTERNATIONAL UNIT, QD, 180 IU, QD, (60 IU, TID)
     Route: 048
     Dates: end: 20210928
  51. HUMALOG MIX50/50 [Suspect]
     Active Substance: INSULIN LISPRO
     Dosage: 360 INTERNATIONAL UNIT, QD, 360 IU, QD (120 IU, TID,60 IU)
     Route: 048
     Dates: end: 20210928
  52. HUMALOG MIX50/50 [Suspect]
     Active Substance: INSULIN LISPRO
     Dosage: 120 INTERNATIONAL UNIT, 120 IU, (120 INTERNATIONAL UNIT, 3 TIMES A DAY)
     Dates: end: 20210928
  53. HUMALOG MIX50/50 [Suspect]
     Active Substance: INSULIN LISPRO
     Dosage: 180 INTERNATIONAL UNIT, QD, 180 IU, QD (60 IU, TID)
     Route: 048
     Dates: end: 20210928
  54. HUMALOG MIX50/50 [Suspect]
     Active Substance: INSULIN LISPRO
     Dosage: 180 INTERNATIONAL UNIT, QD, 60 IU, TID (180 INTERNATIONAL UNIT, QD)
     Route: 048
     Dates: end: 20210928
  55. HUMALOG MIX50/50 [Suspect]
     Active Substance: INSULIN LISPRO
     Dosage: UNK
     Route: 065
  56. HUMALOG MIX50/50 [Suspect]
     Active Substance: INSULIN LISPRO
     Dosage: UNK
     Route: 065
  57. HUMALOG MIX50/50 [Suspect]
     Active Substance: INSULIN LISPRO
     Dosage: 120 IU, TID,60 IU ALSO RECEIVED
     Route: 048
     Dates: end: 20180928

REACTIONS (9)
  - Pneumonia [Fatal]
  - Loss of consciousness [Fatal]
  - Multiple organ dysfunction syndrome [Fatal]
  - Off label use [Fatal]
  - Incorrect route of product administration [Fatal]
  - Medication error [Fatal]
  - Intentional product misuse [Fatal]
  - Overdose [Fatal]
  - Drug abuse [Unknown]

NARRATIVE: CASE EVENT DATE: 20180101
